FAERS Safety Report 6612694-0 (Version None)
Quarter: 2010Q1

REPORT INFORMATION
  Report Type: 
  Country: None (occurrence: None)
  Receive Date: 20100303
  Receipt Date: 20100219
  Transmission Date: 20100710
  Serious: Yes (Death, Hospitalization)
  Sender: FDA-Public Use
  Company Number: US-PFIZER INC-2009250033

PATIENT
  Sex: Female

DRUGS (1)
  1. SUTENT [Suspect]
     Indication: METASTATIC RENAL CELL CARCINOMA
     Dosage: 50 MG, 1X/DAY
     Dates: start: 20090501

REACTIONS (4)
  - BLOOD CALCIUM INCREASED [None]
  - CONFUSIONAL STATE [None]
  - DISEASE PROGRESSION [None]
  - NEOPLASM MALIGNANT [None]
